FAERS Safety Report 8088502-0 (Version None)
Quarter: 2012Q1

REPORT INFORMATION
  Report Type: 
  Country: None (occurrence: None)
  Receive Date: 20120128
  Receipt Date: 20110429
  Transmission Date: 20120608
  Serious: No
  Sender: FDA-Public Use
  Company Number: US-ABBOTT-11P-163-0722665-00

PATIENT
  Age: 49 Year
  Sex: Female

DRUGS (12)
  1. FLOVENT [Concomitant]
     Indication: ASTHMA
     Dosage: DAILY
     Route: 055
     Dates: start: 20080101
  2. FLONASE [Concomitant]
     Indication: PRODUCT USED FOR UNKNOWN INDICATION
     Dosage: 2 SPRAYS EACH NARE AT BEDTIME
  3. PROTONIX [Concomitant]
     Indication: GASTROOESOPHAGEAL REFLUX DISEASE
     Dosage: 40MG DAILY
     Route: 048
     Dates: start: 20060101
  4. DEPAKOTE [Concomitant]
     Indication: BIPOLAR DISORDER
     Dosage: 1000MG AT BEDTIME
     Dates: start: 19910101
  5. ALBUTEROL [Concomitant]
     Indication: WHEEZING
     Dosage: PRN
     Route: 055
  6. ALBUTEROL [Concomitant]
     Indication: ASTHMA
  7. CLARITIN [Concomitant]
     Indication: HYPERSENSITIVITY
     Dosage: DAILY
     Route: 048
  8. DEPAKOTE [Concomitant]
     Indication: EPILEPSY
  9. VITAMIN D [Concomitant]
     Indication: MUSCLE SPASMS
     Dosage: 1000 UNITS DAILY
  10. DOVONEX [Concomitant]
     Indication: PRODUCT USED FOR UNKNOWN INDICATION
     Route: 061
  11. HUMIRA [Suspect]
     Indication: PSORIASIS
     Dates: start: 20101001
  12. CLOBETASOL [Concomitant]
     Indication: PRODUCT USED FOR UNKNOWN INDICATION
     Route: 061

REACTIONS (4)
  - MALAISE [None]
  - DRUG INEFFECTIVE [None]
  - UPPER RESPIRATORY TRACT INFECTION [None]
  - DRUG DOSE OMISSION [None]
